FAERS Safety Report 16240624 (Version 1)
Quarter: 2019Q2

REPORT INFORMATION
  Report Type: Report from Study
  Country: US (occurrence: US)
  Receive Date: 20190425
  Receipt Date: 20190425
  Transmission Date: 20190711
  Serious: Yes (Other)
  Sender: FDA-Public Use
  Company Number: US-ACTELION-A-NJ2019-189083

PATIENT
  Sex: Male
  Weight: 74.38 kg

DRUGS (8)
  1. ORENITRAM [Concomitant]
     Active Substance: TREPROSTINIL
     Dosage: 6.375 MG, TID
  2. ORENITRAM [Concomitant]
     Active Substance: TREPROSTINIL
     Dosage: 6 MG, TID FOR TWO WEEKS
  3. ORENITRAM [Concomitant]
     Active Substance: TREPROSTINIL
     Dosage: 6 MG, Q8 HRS
  4. ORENITRAM [Concomitant]
     Active Substance: TREPROSTINIL
     Dosage: 6.125 MG, TID FOR 1 DAY
  5. ORENITRAM [Concomitant]
     Active Substance: TREPROSTINIL
     Dosage: 6 MG, TID
  6. REVATIO [Concomitant]
     Active Substance: SILDENAFIL CITRATE
  7. ORENITRAM [Concomitant]
     Active Substance: TREPROSTINIL
     Dosage: 6.25 MG, TID FOR 1 DAY
  8. OPSUMIT [Suspect]
     Active Substance: MACITENTAN
     Indication: PULMONARY ARTERIAL HYPERTENSION
     Dosage: 10 MG, QD
     Route: 048
     Dates: start: 2019

REACTIONS (6)
  - Malaise [Unknown]
  - Hypotension [Unknown]
  - Muscle spasms [Not Recovered/Not Resolved]
  - Myalgia [Unknown]
  - Dizziness [Unknown]
  - Dialysis [Unknown]
